FAERS Safety Report 4386094-0 (Version None)
Quarter: 2004Q2

REPORT INFORMATION
  Report Type: 
  Country: None (occurrence: None)
  Receive Date: 20040625
  Receipt Date: 20040625
  Transmission Date: 20050107
  Serious: Yes (Life-Threatening, Hospitalization)
  Sender: FDA-Public Use
  Company Number: None

PATIENT
  Age: 6 Year
  Sex: Male
  Weight: 31.7518 kg

DRUGS (1)
  1. ASPIRIN [Suspect]
     Indication: PYREXIA
     Dosage: 5 TABLETS, 3 DOSES GIVEN IN 48 HRS , ORAL
     Route: 048
     Dates: start: 20040601, end: 20040602

REACTIONS (4)
  - APALLIC SYNDROME [None]
  - HEPATITIS [None]
  - MEDICATION ERROR [None]
  - REYE'S SYNDROME [None]
